FAERS Safety Report 10510391 (Version 1)
Quarter: 2014Q4

REPORT INFORMATION
  Report Type: Spontaneous
  Country: US (occurrence: None)
  Receive Date: 20141009
  Receipt Date: 20141009
  Transmission Date: 20150528
  Serious: Yes (Hospitalization)
  Sender: FDA-Public Use
  Company Number: None

PATIENT
  Age: 68 Year
  Sex: Male
  Weight: 89.5 kg

DRUGS (4)
  1. LISINOPRIL. [Suspect]
     Active Substance: LISINOPRIL
     Indication: SURGERY
     Route: 048
     Dates: start: 20120512, end: 20140718
  2. LISINOPRIL. [Suspect]
     Active Substance: LISINOPRIL
     Indication: HYPERTENSION
     Route: 048
     Dates: start: 20120512, end: 20140718
  3. LISINOPRIL. [Suspect]
     Active Substance: LISINOPRIL
     Indication: ACUTE MYOCARDIAL INFARCTION
     Route: 048
     Dates: start: 20120512, end: 20140718
  4. LISINOPRIL. [Suspect]
     Active Substance: LISINOPRIL
     Indication: CARDIOVASCULAR DISORDER
     Route: 048
     Dates: start: 20120512, end: 20140718

REACTIONS (5)
  - Angioedema [None]
  - Back pain [None]
  - Acute myocardial infarction [None]
  - Anaphylactic reaction [None]
  - Angina pectoris [None]

NARRATIVE: CASE EVENT DATE: 20140718
